FAERS Safety Report 25934971 (Version 1)
Quarter: 2025Q4

REPORT INFORMATION
  Report Type: Spontaneous
  Country: JP (occurrence: JP)
  Receive Date: 20251017
  Receipt Date: 20251017
  Transmission Date: 20260118
  Serious: Yes (Other)
  Sender: MYLAN
  Company Number: JP-MYLANLABS-2025M1087747

PATIENT
  Sex: Male

DRUGS (16)
  1. CYCLOSPORINE [Suspect]
     Active Substance: CYCLOSPORINE
     Indication: Psoriatic arthropathy
  2. CYCLOSPORINE [Suspect]
     Active Substance: CYCLOSPORINE
     Indication: Rheumatoid arthritis
  3. INFLIXIMAB [Suspect]
     Active Substance: INFLIXIMAB
     Indication: Psoriatic arthropathy
  4. INFLIXIMAB [Suspect]
     Active Substance: INFLIXIMAB
     Indication: Rheumatoid arthritis
  5. GUSELKUMAB [Concomitant]
     Active Substance: GUSELKUMAB
     Indication: Psoriatic arthropathy
  6. GUSELKUMAB [Concomitant]
     Active Substance: GUSELKUMAB
     Indication: Rheumatoid arthritis
  7. RISANKIZUMAB [Concomitant]
     Active Substance: RISANKIZUMAB
     Indication: Psoriatic arthropathy
  8. RISANKIZUMAB [Concomitant]
     Active Substance: RISANKIZUMAB
     Indication: Rheumatoid arthritis
  9. BRODALUMAB [Concomitant]
     Active Substance: BRODALUMAB
     Indication: Psoriatic arthropathy
  10. BRODALUMAB [Concomitant]
     Active Substance: BRODALUMAB
     Indication: Rheumatoid arthritis
  11. UPADACITINIB [Concomitant]
     Active Substance: UPADACITINIB
     Indication: Psoriatic arthropathy
  12. UPADACITINIB [Concomitant]
     Active Substance: UPADACITINIB
     Indication: Rheumatoid arthritis
  13. METHOTREXATE [Concomitant]
     Active Substance: METHOTREXATE
     Indication: Psoriatic arthropathy
  14. METHOTREXATE [Concomitant]
     Active Substance: METHOTREXATE
     Indication: Rheumatoid arthritis
  15. BETAMETHASONE [Concomitant]
     Active Substance: BETAMETHASONE
     Indication: Psoriatic arthropathy
  16. BETAMETHASONE [Concomitant]
     Active Substance: BETAMETHASONE
     Indication: Rheumatoid arthritis

REACTIONS (1)
  - Drug ineffective [Unknown]
